FAERS Safety Report 24576028 (Version 2)
Quarter: 2025Q3

REPORT INFORMATION
  Report Type: Other
  Country: US (occurrence: US)
  Receive Date: 20241104
  Receipt Date: 20250919
  Transmission Date: 20251021
  Serious: No
  Sender: TRAVERE THERAPEUTICS
  Company Number: US-TRAVERE-2024TVT01058

PATIENT
  Sex: Male

DRUGS (1)
  1. FILSPARI [Suspect]
     Active Substance: SPARSENTAN
     Indication: IgA nephropathy
     Dosage: LOT NUMBER: 1979025, EXPIRY DATE: 30-AUG-2026
     Route: 048
     Dates: start: 202407

REACTIONS (2)
  - Pruritus [None]
  - Photosensitivity reaction [Unknown]
